FAERS Safety Report 19930526 (Version 1)
Quarter: 2021Q4

REPORT INFORMATION
  Report Type: Spontaneous
  Country: JP (occurrence: JP)
  Receive Date: 20211007
  Receipt Date: 20211007
  Transmission Date: 20220303
  Serious: Yes (Other)
  Sender: FDA-Public Use
  Company Number: JP-BAYER-2021A223424

PATIENT
  Age: 50 Year

DRUGS (2)
  1. STIVARGA [Suspect]
     Active Substance: REGORAFENIB
     Indication: Colon cancer recurrent
     Dosage: DAILY DOSE 120 MG
  2. STIVARGA [Suspect]
     Active Substance: REGORAFENIB
     Indication: Colon cancer recurrent
     Dosage: DAILY DOSE 80 MG

REACTIONS (3)
  - Colon cancer recurrent [Unknown]
  - Palmar-plantar erythrodysaesthesia syndrome [Unknown]
  - Off label use [None]
